FAERS Safety Report 8369127-6 (Version None)
Quarter: 2012Q2

REPORT INFORMATION
  Report Type: 
  Country: None (occurrence: None)
  Receive Date: 20120516
  Receipt Date: 20120516
  Transmission Date: 20120825
  Serious: Yes (Other)
  Sender: FDA-Public Use
  Company Number: None

PATIENT
  Age: 27 Year
  Sex: Female
  Weight: 79.3795 kg

DRUGS (1)
  1. PARAGARD T 380A [Suspect]
     Indication: CONTRACEPTION
     Dosage: PARAGARD
     Dates: start: 20080401, end: 20091001

REACTIONS (5)
  - MATERNAL EXPOSURE DURING PREGNANCY [None]
  - PREGNANCY WITH CONTRACEPTIVE DEVICE [None]
  - MENOMETRORRHAGIA [None]
  - CONSTIPATION [None]
  - ABDOMINAL PAIN [None]
